APPROVED DRUG PRODUCT: LEVOPROME
Active Ingredient: LEVOMEPROMAZINE
Strength: 20MG/ML
Dosage Form/Route: INJECTABLE;INJECTION
Application: N015865 | Product #001
Applicant: IMMUNEX CORP
Approved: Approved Prior to Jan 1, 1982 | RLD: No | RS: No | Type: DISCN